FAERS Safety Report 4302912-6 (Version None)
Quarter: 2004Q1

REPORT INFORMATION
  Report Type: 
  Country: None (occurrence: None)
  Receive Date: 20040223
  Receipt Date: 20040223
  Transmission Date: 20041129
  Serious: Yes (Life-Threatening)
  Sender: FDA-Public Use
  Company Number: None

PATIENT
  Age: 31 Year
  Sex: Female
  Weight: 78 kg

DRUGS (7)
  1. ARGATROBAN [Suspect]
     Indication: THROMBOSIS PROPHYLAXIS
     Dosage: 0.3MCG/KG/MI CONTINUOUS INTRAVENOUS
     Route: 042
     Dates: start: 20040120, end: 20040126
  2. METHYLPREDNISOLONE [Concomitant]
  3. NITROGLYCERIN [Concomitant]
  4. CAPTOPRIL [Concomitant]
  5. METOPROLOL [Concomitant]
  6. FAMOTIDINE [Concomitant]
  7. CEFAZOLIN [Concomitant]

REACTIONS (2)
  - INTERNATIONAL NORMALISED RATIO INCREASED [None]
  - PROTHROMBIN TIME PROLONGED [None]
